FAERS Safety Report 5937983-4 (Version None)
Quarter: 2008Q4

REPORT INFORMATION
  Report Type: 
  Country: None (occurrence: None)
  Receive Date: 20081031
  Receipt Date: 20081020
  Transmission Date: 20090506
  Serious: Yes (Death, Hospitalization)
  Sender: FDA-Public Use
  Company Number: JP-PFIZER INC-2008079257

PATIENT
  Sex: Male
  Weight: 63 kg

DRUGS (5)
  1. SOLU-MEDROL [Suspect]
     Indication: GLOMERULONEPHRITIS
     Dosage: DAILY DOSE:500MG
     Route: 042
     Dates: start: 20070608, end: 20070610
  2. SOLU-MEDROL [Suspect]
     Indication: RENAL FAILURE ACUTE
  3. PREDONINE [Suspect]
     Indication: RENAL FAILURE ACUTE
     Dosage: DAILY DOSE:10MG
     Route: 048
     Dates: start: 20070611, end: 20070619
  4. MEROPEN [Concomitant]
     Route: 042
     Dates: start: 20070605, end: 20070628
  5. UNASYN [Concomitant]
     Route: 042
     Dates: start: 20070605, end: 20070628

REACTIONS (2)
  - ANEURYSM RUPTURED [None]
  - SHOCK HAEMORRHAGIC [None]
